FAERS Safety Report 23967515 (Version 1)
Quarter: 2024Q2

REPORT INFORMATION
  Report Type: Spontaneous
  Country: US (occurrence: None)
  Receive Date: 20240611
  Receipt Date: 20240611
  Transmission Date: 20240716
  Serious: Yes (Other)
  Sender: FDA-Public Use
  Company Number: None

PATIENT
  Age: 45 Year
  Sex: Female
  Weight: 69.3 kg

DRUGS (1)
  1. UBRELVY [Suspect]
     Active Substance: UBROGEPANT
     Indication: Migraine
     Dosage: OTHER QUANTITY : 1 CAPSULE(S);?OTHER FREQUENCY : 50 MG INTIAL 50 MG;?
     Route: 048
     Dates: start: 20240611, end: 20240611

REACTIONS (4)
  - Abdominal pain [None]
  - Dysmenorrhoea [None]
  - Intermenstrual bleeding [None]
  - Menstruation irregular [None]

NARRATIVE: CASE EVENT DATE: 20240611
